FAERS Safety Report 17962475 (Version 2)
Quarter: 2021Q2

REPORT INFORMATION
  Report Type: Report from Study
  Country: US (occurrence: US)
  Receive Date: 20200630
  Receipt Date: 20210512
  Transmission Date: 20210717
  Serious: No
  Sender: FDA-Public Use
  Company Number: US-SA-2020SA164394

PATIENT
  Age: 71 Year
  Sex: Female

DRUGS (5)
  1. DUPILUMAB [Suspect]
     Active Substance: DUPILUMAB
     Dosage: 300 MG, QOW
     Route: 058
     Dates: start: 202004
  2. DUPILUMAB [Suspect]
     Active Substance: DUPILUMAB
     Indication: DERMATITIS ATOPIC
     Dosage: 600 MG, 1X
     Route: 058
     Dates: start: 20200325, end: 20200325
  3. DUPILUMAB [Suspect]
     Active Substance: DUPILUMAB
     Dosage: UNK, Q3W
  4. DUPILUMAB [Suspect]
     Active Substance: DUPILUMAB
     Dosage: UNK, Q4W
  5. DUPILUMAB [Suspect]
     Active Substance: DUPILUMAB
     Dosage: UNK, Q5W

REACTIONS (2)
  - Off label use [Unknown]
  - Injection site rash [Recovered/Resolved]
